FAERS Safety Report 5598107-9 (Version None)
Quarter: 2008Q1

REPORT INFORMATION
  Report Type: 
  Country: None (occurrence: None)
  Receive Date: 20080122
  Receipt Date: 20080116
  Transmission Date: 20080703
  Serious: Yes (Hospitalization, Other)
  Sender: FDA-Public Use
  Company Number: JP-BAYER-200710016BYL

PATIENT
  Age: 74 Year
  Sex: Female
  Weight: 50 kg

DRUGS (15)
  1. BAY43-9006 [Suspect]
     Indication: RENAL CELL CARCINOMA
     Route: 048
     Dates: start: 20050307, end: 20050322
  2. BAY43-9006 [Suspect]
     Route: 048
     Dates: start: 20050406, end: 20070109
  3. BAY43-9006 [Suspect]
     Dosage: TOTAL DAILY DOSE: 400 MG
     Route: 048
     Dates: start: 20070206
  4. ITOROL [Concomitant]
     Indication: ANGINA PECTORIS
     Route: 048
  5. SIGMART [Concomitant]
     Indication: ANGINA PECTORIS
     Route: 048
  6. NORVASC [Concomitant]
     Indication: HYPERTENSION
     Route: 048
     Dates: start: 20050823
  7. SOLITA-T NO.3-G [Concomitant]
     Route: 065
  8. VITAMEDIN [Concomitant]
     Route: 048
  9. ENSURE H [Concomitant]
     Indication: DEHYDRATION
     Route: 065
     Dates: start: 20070104
  10. KENTAN [Concomitant]
     Indication: ABDOMINAL PAIN
     Route: 048
  11. LOXONIN [Concomitant]
     Indication: ABDOMINAL PAIN
     Route: 048
  12. MUCOSTA [Concomitant]
     Indication: GASTRITIS PROPHYLAXIS
     Route: 048
  13. DERMOVATE [Concomitant]
     Indication: RASH
     Route: 062
  14. SAHNE [Concomitant]
     Indication: RASH
     Route: 062
  15. LAC-B [Concomitant]
     Indication: DIARRHOEA
     Route: 048

REACTIONS (16)
  - ABDOMINAL PAIN UPPER [None]
  - ALOPECIA [None]
  - ANOREXIA [None]
  - ARRHYTHMIA [None]
  - BLOOD ALBUMIN DECREASED [None]
  - C-REACTIVE PROTEIN INCREASED [None]
  - CARDIAC FAILURE CONGESTIVE [None]
  - DEHYDRATION [None]
  - DIARRHOEA [None]
  - HYPERTENSION [None]
  - HYPOGEUSIA [None]
  - HYPOPROTEINAEMIA [None]
  - HYPOTHYROIDISM [None]
  - OEDEMA PERIPHERAL [None]
  - PURPURA [None]
  - RASH [None]
